FAERS Safety Report 16069744 (Version 1)
Quarter: 2019Q1

REPORT INFORMATION
  Report Type: Other
  Country: CA (occurrence: CA)
  Receive Date: 20190314
  Receipt Date: 20190314
  Transmission Date: 20190418
  Serious: Yes (Other)
  Sender: FDA-Public Use
  Company Number: CA-APOTEX-2019AP009139

PATIENT
  Sex: Female

DRUGS (20)
  1. ARIPIPRAZOLE. [Suspect]
     Active Substance: ARIPIPRAZOLE
     Indication: PRODUCT USED FOR UNKNOWN INDICATION
     Route: 065
  2. LEVOTHYROXINE SODIUM. [Suspect]
     Active Substance: LEVOTHYROXINE SODIUM
     Indication: PRODUCT USED FOR UNKNOWN INDICATION
     Dosage: 1 DF, DAILY
     Route: 065
     Dates: start: 20190228
  3. COLECALCIFEROL [Suspect]
     Active Substance: CHOLECALCIFEROL
     Indication: PRODUCT USED FOR UNKNOWN INDICATION
     Dosage: 1 DF, ONCE A WEEK (SUNDAY)
     Route: 065
     Dates: start: 20190228
  4. ESTRADIOL. [Suspect]
     Active Substance: ESTRADIOL
     Indication: PRODUCT USED FOR UNKNOWN INDICATION
     Dosage: 1 DF, WITH APPLICATOR INTO THE VAGINA TWICW PER WEEK (MON, THUR)
     Route: 067
     Dates: start: 20190228
  5. JAMP ACETAMINOPHEN [Suspect]
     Active Substance: ACETAMINOPHEN
     Indication: PYREXIA
  6. FLUVIRAL [Suspect]
     Active Substance: INFLUENZA VIRUS VACCINE
     Indication: PRODUCT USED FOR UNKNOWN INDICATION
     Dosage: UNK
     Route: 065
     Dates: start: 20181005
  7. AA-CLOZAPINE [Suspect]
     Active Substance: CLOZAPINE
     Indication: PRODUCT USED FOR UNKNOWN INDICATION
     Dosage: 1 DF, QD (200 MG)
     Route: 065
     Dates: start: 20190228
  8. APO-DIVALPROEX [Suspect]
     Active Substance: DIVALPROEX SODIUM
     Indication: PRODUCT USED FOR UNKNOWN INDICATION
     Dosage: 1 DF, BID
     Route: 065
     Dates: start: 20190228
  9. BREXPIPRAZOLE [Suspect]
     Active Substance: BREXPIPRAZOLE
     Indication: PRODUCT USED FOR UNKNOWN INDICATION
     Route: 065
  10. RANITIDINE. [Suspect]
     Active Substance: RANITIDINE
     Indication: PRODUCT USED FOR UNKNOWN INDICATION
     Dosage: 1 DF, BID
     Route: 065
     Dates: start: 20190228
  11. AMLODIPINE [Suspect]
     Active Substance: AMLODIPINE BESYLATE
     Indication: PRODUCT USED FOR UNKNOWN INDICATION
     Dosage: 1 DF, ONCE DAILY
     Route: 065
     Dates: start: 20190228
  12. JAMP ACETAMINOPHEN [Suspect]
     Active Substance: ACETAMINOPHEN
     Indication: PAIN
     Dosage: 2 DF, EVERY 4 HOURS AS NEEDED
     Route: 065
     Dates: start: 20190226
  13. CLOTRIMAZOLE. [Suspect]
     Active Substance: CLOTRIMAZOLE
     Indication: RASH
     Dosage: APPLY TO AFFECTED AREA TWICE A DAY
     Route: 065
     Dates: start: 20181124
  14. ALMAGEL /00082501/ [Suspect]
     Active Substance: ALUMINUM HYDROXIDE\MAGNESIUM HYDROXIDE
     Indication: ABDOMINAL DISCOMFORT
     Dosage: 30 ML, EVEY 4 HOURS AS NEEDED
     Route: 048
     Dates: start: 20180831
  15. AA-CLOZAPINE [Suspect]
     Active Substance: CLOZAPINE
     Dosage: 3 DF, Q.H.S. (20 MG)
     Route: 065
     Dates: start: 20190228
  16. PREMARIN [Suspect]
     Active Substance: ESTROGENS, CONJUGATED
     Indication: PRODUCT USED FOR UNKNOWN INDICATION
     Dosage: 0.5 G, TOPICALLY TO VAGINAL OPENING AND URETHRAL MEATUS TWICW WEEKLY
     Route: 061
     Dates: start: 20190228
  17. MINT ZOPICLONE [Suspect]
     Active Substance: ZOPICLONE
     Indication: INSOMNIA
     Dosage: 1 DF, ONCE A DAILY AT BEDTIME AS NEEDED
     Route: 065
     Dates: start: 20181029
  18. OLANZAPINE. [Suspect]
     Active Substance: OLANZAPINE
     Indication: MOOD ALTERED
     Dosage: 1 DF, BID (5 MG)
     Route: 065
     Dates: start: 20190228
  19. OLANZAPINE. [Suspect]
     Active Substance: OLANZAPINE
     Dosage: 1 TABLET ONCE DAILY AS NEEDED (5 MG)
     Route: 065
     Dates: start: 20190215
  20. OLANZAPINE. [Suspect]
     Active Substance: OLANZAPINE
     Dosage: 1 DF, BID (2.5 MG)
     Route: 065
     Dates: start: 20190228

REACTIONS (5)
  - Electrocardiogram QT prolonged [Unknown]
  - Drug interaction [Unknown]
  - Sinus rhythm [Unknown]
  - Drug level increased [Unknown]
  - Schizoaffective disorder [Unknown]
